FAERS Safety Report 4585062-3 (Version None)
Quarter: 2005Q1

REPORT INFORMATION
  Report Type: 
  Country: None (occurrence: None)
  Receive Date: 20050217
  Receipt Date: 20041216
  Transmission Date: 20050727
  Serious: No
  Sender: FDA-Public Use
  Company Number: US-GLAXOSMITHKLINE-A0537619A

PATIENT
  Age: 35 Year
  Sex: Male

DRUGS (3)
  1. WELLBUTRIN [Suspect]
     Indication: DEPRESSION
     Dosage: 300MG PER DAY
     Route: 048
  2. LIPITOR [Concomitant]
  3. AVANDIA [Concomitant]

REACTIONS (3)
  - ANXIETY [None]
  - INSOMNIA [None]
  - WEIGHT DECREASED [None]
